FAERS Safety Report 7150467-3 (Version None)
Quarter: 2010Q4

REPORT INFORMATION
  Report Type: 
  Country: None (occurrence: None)
  Receive Date: 20101210
  Receipt Date: 20101206
  Transmission Date: 20110411
  Serious: Yes (Death, Other)
  Sender: FDA-Public Use
  Company Number: PHHY2010JP57626

PATIENT
  Sex: Female
  Weight: 54 kg

DRUGS (32)
  1. NEORAL [Suspect]
     Indication: RENAL TRANSPLANT
     Dosage: 400 MG, QD
     Route: 048
     Dates: start: 20090922
  2. NEORAL [Suspect]
     Dosage: 225 MG DAILY
     Route: 048
     Dates: start: 20090923
  3. NEORAL [Suspect]
     Dosage: 100 MG/DAY
     Route: 048
     Dates: start: 20090924
  4. NEORAL [Suspect]
     Dosage: 250 MG, QD
     Route: 048
     Dates: start: 20090927, end: 20091007
  5. NEORAL [Suspect]
     Dosage: 100 MG DAILY
     Route: 048
     Dates: start: 20090928
  6. NEORAL [Suspect]
     Dosage: 150 MG DAILY
     Route: 048
     Dates: start: 20090930
  7. NEORAL [Suspect]
     Dosage: 125 MG DAILY
     Route: 048
     Dates: start: 20091006, end: 20091007
  8. NEORAL [Suspect]
     Dosage: 150 MG DAILY
     Route: 048
     Dates: start: 20091008
  9. NEORAL [Suspect]
     Dosage: 125 MG DAILY
     Route: 048
     Dates: start: 20091011
  10. NEORAL [Suspect]
     Dosage: 150 MG DAILY
     Route: 048
     Dates: start: 20091023
  11. NEORAL [Suspect]
     Dosage: 125 MG DAILY
     Route: 048
     Dates: start: 20091101
  12. NEORAL [Suspect]
     Dosage: 150 MG DAILY
     Route: 048
     Dates: start: 20091111
  13. NEORAL [Suspect]
     Dosage: 175 MG DAILY
     Route: 048
     Dates: start: 20091116
  14. NEORAL [Suspect]
     Dosage: 150 MG DAILY
     Route: 048
     Dates: start: 20091207, end: 20091215
  15. SANDIMMUNE [Concomitant]
     Indication: RENAL TRANSPLANT
     Dosage: 120MG
     Route: 041
     Dates: start: 20090924, end: 20090926
  16. SANDIMMUNE [Concomitant]
     Dosage: UNK
     Route: 041
     Dates: start: 20090924, end: 20090926
  17. SANDIMMUNE [Concomitant]
     Dosage: UNK
     Route: 041
     Dates: start: 20090924, end: 20090926
  18. SIMULECT [Concomitant]
     Indication: RENAL TRANSPLANT
     Dosage: 20 MG
     Dates: start: 20090924, end: 20090928
  19. SIMULECT [Concomitant]
     Dosage: 20 MG
     Route: 041
     Dates: start: 20090924, end: 20090928
  20. CELLCEPT [Concomitant]
     Indication: RENAL TRANSPLANT
     Dosage: 1000MG
     Route: 048
     Dates: start: 20090910
  21. CELLCEPT [Concomitant]
     Dosage: 1500MG
     Route: 048
     Dates: start: 20090910
  22. SOL-MELCORT [Concomitant]
     Indication: RENAL TRANSPLANT
     Dosage: 250 MG
     Route: 041
     Dates: start: 20090924, end: 20090926
  23. SOL-MELCORT [Concomitant]
     Dosage: 20MG
     Route: 041
  24. MEDROL [Concomitant]
     Indication: RENAL TRANSPLANT
     Dosage: 8 MG
     Route: 048
     Dates: start: 20090917
  25. MEDROL [Concomitant]
     Dosage: 20 MG
     Route: 048
  26. MEDROL [Concomitant]
     Dosage: 16 MG
     Route: 048
  27. MEDROL [Concomitant]
     Dosage: 12 MG
     Route: 048
  28. MEDROL [Concomitant]
     Dosage: 8 MG
     Route: 048
  29. MEDROL [Concomitant]
     Dosage: 4 MG
     Route: 048
  30. FLUMARIN [Concomitant]
     Dosage: 2MG
     Route: 041
     Dates: start: 20090924, end: 20090929
  31. FLOMOX [Concomitant]
     Dosage: 300MG
     Route: 048
     Dates: start: 20090930, end: 20091026
  32. VALGANCICLOVIR [Concomitant]
     Indication: CYTOMEGALOVIRUS TEST POSITIVE
     Dosage: 450 MG
     Route: 048
     Dates: start: 20091109

REACTIONS (2)
  - BLOOD IMMUNOGLOBULIN G INCREASED [None]
  - DEATH [None]
